FAERS Safety Report 19561474 (Version 1)
Quarter: 2021Q3

REPORT INFORMATION
  Report Type: Spontaneous
  Country: US (occurrence: US)
  Receive Date: 20210716
  Receipt Date: 20210716
  Transmission Date: 20211014
  Serious: No
  Sender: FDA-Public Use
  Company Number: None

PATIENT
  Age: 75 Year
  Sex: Male
  Weight: 88.5 kg

DRUGS (1)
  1. NIRAPARIB TOSYLATE MONOHYDRATE [Suspect]
     Active Substance: NIRAPARIB TOSYLATE MONOHYDRATE
     Dates: end: 20210115

REACTIONS (4)
  - Dry eye [None]
  - Nausea [None]
  - Malaise [None]
  - Ataxia [None]

NARRATIVE: CASE EVENT DATE: 20210203
